FAERS Safety Report 4811721-0 (Version None)
Quarter: 2005Q4

REPORT INFORMATION
  Report Type: 
  Country: None (occurrence: None)
  Receive Date: 20051025
  Receipt Date: 20051011
  Transmission Date: 20060501
  Serious: Yes (Hospitalization)
  Sender: FDA-Public Use
  Company Number: 200510477BFR

PATIENT
  Age: 80 Year
  Sex: Male
  Weight: 76 kg

DRUGS (9)
  1. CIPROFLOXACIN HCL [Suspect]
     Dosage: ORAL
     Route: 048
     Dates: start: 20050517, end: 20050524
  2. PREVISCAN (FLUINDIONE) [Suspect]
     Indication: PROPHYLAXIS
     Dosage: SEE IMAGE
     Dates: end: 20050524
  3. PREVISCAN (FLUINDIONE) [Suspect]
     Indication: PULMONARY EMBOLISM
     Dosage: SEE IMAGE
     Dates: end: 20050524
  4. PREVISCAN (FLUINDIONE) [Suspect]
     Indication: PROPHYLAXIS
     Dosage: SEE IMAGE
     Dates: start: 20040801
  5. PREVISCAN (FLUINDIONE) [Suspect]
     Indication: PULMONARY EMBOLISM
     Dosage: SEE IMAGE
     Dates: start: 20040801
  6. EFFERALGAN CODEINE [Concomitant]
  7. FORADIL [Concomitant]
  8. SOLU-MEDROL [Concomitant]
  9. RIVOTRIL [Concomitant]

REACTIONS (23)
  - BLOOD AMYLASE INCREASED [None]
  - BLOOD FIBRINOGEN INCREASED [None]
  - COMA [None]
  - DYSPNOEA [None]
  - FALL [None]
  - HEPATIC ENZYME INCREASED [None]
  - HEPATIC FAILURE [None]
  - HEPATOMEGALY [None]
  - INTERNATIONAL NORMALISED RATIO INCREASED [None]
  - JAUNDICE [None]
  - LIPASE INCREASED [None]
  - LUNG CANCER METASTATIC [None]
  - METASTASES TO LIVER [None]
  - MULTI-ORGAN FAILURE [None]
  - OEDEMA PERIPHERAL [None]
  - OVERDOSE [None]
  - PROTHROMBIN TIME PROLONGED [None]
  - PROTHROMBIN TIME SHORTENED [None]
  - PULMONARY CONGESTION [None]
  - PYREXIA [None]
  - RALES [None]
  - RENAL FAILURE [None]
  - RHONCHI [None]
